FAERS Safety Report 8890564 (Version 1)
Quarter: 2012Q4

REPORT INFORMATION
  Report Type: 
  Country: JP (occurrence: JP)
  Receive Date: 20121107
  Receipt Date: 20121107
  Transmission Date: 20130627
  Serious: Yes (Other)
  Sender: FDA-Public Use
  Company Number: JP-ASTELLAS-2012JP010381

PATIENT
  Age: 50 Year
  Sex: Female

DRUGS (4)
  1. PROGRAF [Suspect]
     Indication: RHEUMATOID ARTHRITIS
     Dosage: 1.5 mg, Unknown/D
     Route: 065
  2. PROGRAF [Suspect]
     Dosage: 1.5 mg, Unknown/D
     Route: 065
     Dates: start: 2006
  3. INFLIXIMAB [Concomitant]
     Indication: RHEUMATOID ARTHRITIS
     Dosage: UNK
     Route: 065
  4. MTX                                /00113801/ [Concomitant]
     Indication: RHEUMATOID ARTHRITIS
     Dosage: 8 mg, Weekly
     Route: 065

REACTIONS (2)
  - Drug ineffective [Unknown]
  - Rheumatoid arthritis [Unknown]
